FAERS Safety Report 7571639-X (Version None)
Quarter: 2011Q2

REPORT INFORMATION
  Report Type: 
  Country: None (occurrence: None)
  Receive Date: 20110624
  Receipt Date: 20110615
  Transmission Date: 20111010
  Serious: Yes (Death, Hospitalization, Other)
  Sender: FDA-Public Use
  Company Number: US-MERCK-1106USA01853

PATIENT
  Sex: Female

DRUGS (1)
  1. FOSAMAX [Suspect]
     Route: 048

REACTIONS (4)
  - FEMUR FRACTURE [None]
  - PULMONARY EMBOLISM [None]
  - FOOT FRACTURE [None]
  - MYOCARDIAL INFARCTION [None]
